FAERS Safety Report 8962872 (Version 2)
Quarter: 2012Q4

REPORT INFORMATION
  Report Type: 
  Country: FR (occurrence: FR)
  Receive Date: 20121214
  Receipt Date: 20121228
  Transmission Date: 20130627
  Serious: Yes (Hospitalization, Other)
  Sender: FDA-Public Use
  Company Number: FR-PFIZER INC-2012310687

PATIENT
  Age: 74 Year
  Sex: Female
  Weight: 52 kg

DRUGS (3)
  1. SUTENT [Suspect]
     Indication: RENAL CANCER METASTATIC
     Dosage: 50 mg, 1x/day, 28 days, then 14 days off
     Route: 048
     Dates: start: 20120828
  2. DOMPERIDONE [Concomitant]
     Dosage: UNK
     Route: 048
     Dates: start: 20121201
  3. VOGALENE [Concomitant]
     Dosage: UNK
     Route: 054
     Dates: start: 20121203

REACTIONS (6)
  - Loss of consciousness [Recovering/Resolving]
  - Dyspnoea [Recovering/Resolving]
  - Nausea [Recovering/Resolving]
  - Vomiting [Recovering/Resolving]
  - Weight decreased [Unknown]
  - Decreased appetite [Unknown]
